FAERS Safety Report 10951928 (Version 2)
Quarter: 2015Q2

REPORT INFORMATION
  Report Type: Spontaneous
  Country: BR (occurrence: BR)
  Receive Date: 20150325
  Receipt Date: 20150602
  Transmission Date: 20150821
  Serious: Yes (Hospitalization, Other)
  Sender: FDA-Public Use
  Company Number: BR-AMGEN-BRASP2012063475

PATIENT
  Age: 66 Year
  Sex: Female
  Weight: 87 kg

DRUGS (9)
  1. ARAVA [Concomitant]
     Active Substance: LEFLUNOMIDE
     Dosage: UNK
     Dates: start: 2011
  2. METHOTREXATE [Concomitant]
     Active Substance: METHOTREXATE
     Dosage: 20 MG A WEEK
     Dates: start: 2011
  3. DICLOFENAC [Concomitant]
     Active Substance: DICLOFENAC
     Dosage: UNK
  4. SIMVASTATIN. [Concomitant]
     Active Substance: SIMVASTATIN
     Dosage: 40 MG, 2X/DAY
     Route: 048
     Dates: start: 2010
  5. ATENOLOL. [Concomitant]
     Active Substance: ATENOLOL
     Dosage: UNK, 1X/DAY
     Dates: start: 2012
  6. DIOVAN [Concomitant]
     Active Substance: VALSARTAN
     Dosage: 1 TABLET (160/12.5MG), 2X/DAY
     Route: 048
     Dates: start: 2005
  7. ENBREL [Suspect]
     Active Substance: ETANERCEPT
     Dosage: UNK
     Route: 065
  8. ENBREL [Suspect]
     Active Substance: ETANERCEPT
     Dosage: UNK
     Route: 065
     Dates: start: 2011
  9. ENBREL [Suspect]
     Active Substance: ETANERCEPT
     Indication: RHEUMATOID ARTHRITIS
     Dosage: 50 MG, 1X/WEEK
     Route: 058
     Dates: start: 201112

REACTIONS (6)
  - Wrong technique in drug usage process [Recovered/Resolved]
  - Cardiac disorder [Not Recovered/Not Resolved]
  - Injection site vesicles [Recovering/Resolving]
  - Fibromyalgia [Unknown]
  - Cerebral arteriosclerosis [Recovered/Resolved]
  - Band neutrophil count decreased [Unknown]

NARRATIVE: CASE EVENT DATE: 20120816
